FAERS Safety Report 6975985-X (Version None)
Quarter: 2010Q3

REPORT INFORMATION
  Report Type: 
  Country: None (occurrence: None)
  Receive Date: 20100910
  Receipt Date: 20100831
  Transmission Date: 20110219
  Serious: Yes (Life-Threatening)
  Sender: FDA-Public Use
  Company Number: US-EISAI INC.-E3810-04054-SPO-US

PATIENT
  Sex: Female
  Weight: 55 kg

DRUGS (3)
  1. ACIPHEX [Suspect]
     Indication: GASTRIC DISORDER
     Route: 048
     Dates: start: 19980101, end: 20070101
  2. FENTANYL HYDROCHLORIDE [Concomitant]
  3. ACETAMINOPHEN [Concomitant]

REACTIONS (6)
  - HEADACHE [None]
  - HIATUS HERNIA [None]
  - KNEE ARTHROPLASTY [None]
  - LOSS OF CONSCIOUSNESS [None]
  - MULTI-ORGAN FAILURE [None]
  - SURGERY [None]
